FAERS Safety Report 5241661-7 (Version None)
Quarter: 2007Q1

REPORT INFORMATION
  Report Type: 
  Country: None (occurrence: None)
  Receive Date: 20070212
  Receipt Date: 20070205
  Transmission Date: 20070707
  Serious: Yes (Death, Other)
  Sender: FDA-Public Use
  Company Number: TPA2007A00216

PATIENT
  Age: 27 Year
  Sex: Male

DRUGS (3)
  1. ROZEREM [Suspect]
     Indication: INSOMNIA
     Dosage: PER ORAL
  2. AMBIEN [Suspect]
     Indication: INSOMNIA
  3. AMBIEN [Suspect]
     Indication: MENTAL DISORDER

REACTIONS (3)
  - ASPIRATION [None]
  - RESPIRATORY FAILURE [None]
  - VOMITING [None]
